FAERS Safety Report 12461253 (Version 1)
Quarter: 2016Q2

REPORT INFORMATION
  Report Type: Spontaneous
  Country: US (occurrence: US)
  Receive Date: 20160613
  Receipt Date: 20160613
  Transmission Date: 20160815
  Serious: No
  Sender: FDA-Public Use
  Company Number: US-US WORLDMEDS, LLC-USW201506-000146

PATIENT
  Age: 55 Year
  Sex: Female
  Weight: 47.17 kg

DRUGS (22)
  1. TIGAN [Concomitant]
     Active Substance: TRIMETHOBENZAMIDE HYDROCHLORIDE
     Indication: NAUSEA
  2. TASMAR [Concomitant]
     Active Substance: TOLCAPONE
     Dates: start: 20150702
  3. DRAMAMINE [Concomitant]
     Active Substance: DIMENHYDRINATE
     Indication: VERTIGO
     Dates: start: 20130713
  4. WELLBUTRIN XL [Concomitant]
     Active Substance: BUPROPION HYDROCHLORIDE
     Indication: DEPRESSION
     Dates: start: 20090109
  5. CLONAZEPAM. [Concomitant]
     Active Substance: CLONAZEPAM
     Dates: start: 20060206
  6. VITAMIN C [Concomitant]
     Active Substance: ASCORBIC ACID
     Dates: start: 201101
  7. VITAMIN D [Concomitant]
     Active Substance: CHOLECALCIFEROL
     Dates: start: 20120612
  8. NORCO [Concomitant]
     Active Substance: ACETAMINOPHEN\HYDROCODONE BITARTRATE
     Dates: start: 20130813
  9. SINEMET [Concomitant]
     Active Substance: CARBIDOPA\LEVODOPA
     Dates: start: 20120612, end: 20150416
  10. MAGNESIA [Concomitant]
     Active Substance: MAGNESIUM HYDROXIDE
     Indication: CONSTIPATION
  11. ALIEVE [Concomitant]
     Dates: start: 20120312
  12. SINEMET [Concomitant]
     Active Substance: CARBIDOPA\LEVODOPA
     Dates: start: 20150702
  13. ATIVAN [Concomitant]
     Active Substance: LORAZEPAM
     Indication: VOMITING
     Dates: start: 20131013
  14. EXCEDRIN [Concomitant]
     Active Substance: ACETAMINOPHEN\ASPIRIN\CAFFEINE
     Indication: HEADACHE
  15. VITAMIN C [Concomitant]
     Active Substance: ASCORBIC ACID
     Dates: start: 20110111
  16. COQ10 [Concomitant]
     Active Substance: UBIDECARENONE
     Dates: start: 20050605
  17. AZILECT [Concomitant]
     Active Substance: RASAGILINE MESYLATE
  18. NORCO [Concomitant]
     Active Substance: ACETAMINOPHEN\HYDROCODONE BITARTRATE
     Indication: VOMITING
     Dates: start: 20120812
  19. APOKYN [Suspect]
     Active Substance: APOMORPHINE HYDROCHLORIDE
     Indication: PARKINSON^S DISEASE
     Route: 058
     Dates: start: 20150516, end: 20150701
  20. SINEMET [Concomitant]
     Active Substance: CARBIDOPA\LEVODOPA
     Dates: start: 20150702
  21. CALCIUM [Concomitant]
     Active Substance: CALCIUM
     Dates: start: 20120612
  22. TASMAR [Concomitant]
     Active Substance: TOLCAPONE
     Dates: start: 20130713

REACTIONS (2)
  - Yawning [Recovered/Resolved]
  - Hypersomnia [Recovered/Resolved]

NARRATIVE: CASE EVENT DATE: 20150610
